FAERS Safety Report 8131074-2 (Version None)
Quarter: 2012Q1

REPORT INFORMATION
  Report Type: 
  Country: None (occurrence: None)
  Receive Date: 20120209
  Receipt Date: 20120209
  Transmission Date: 20120608
  Serious: Yes (Disabling, Other)
  Sender: FDA-Public Use
  Company Number: None

PATIENT
  Age: 35 Year
  Sex: Female

DRUGS (1)
  1. LEVOFLOXACIN [Suspect]
     Indication: PNEUMONIA
     Dosage: 50 MG Q 48 HRS IV
     Route: 042
     Dates: start: 20100317

REACTIONS (4)
  - OEDEMA PERIPHERAL [None]
  - TENDON PAIN [None]
  - PAIN IN EXTREMITY [None]
  - CHONDROPATHY [None]
